FAERS Safety Report 11626057 (Version 1)
Quarter: 2015Q4

REPORT INFORMATION
  Report Type: Spontaneous
  Country: US (occurrence: US)
  Receive Date: 20151013
  Receipt Date: 20151013
  Transmission Date: 20160304
  Serious: Yes (Hospitalization)
  Sender: FDA-Public Use
  Company Number: US-JNJFOC-20151006680

PATIENT
  Age: 72 Year
  Sex: Female

DRUGS (3)
  1. INVOKANA [Suspect]
     Active Substance: CANAGLIFLOZIN
     Indication: TYPE 2 DIABETES MELLITUS
     Route: 065
     Dates: start: 20150617, end: 20150905
  2. INVOKANA [Suspect]
     Active Substance: CANAGLIFLOZIN
     Indication: TYPE 2 DIABETES MELLITUS
     Route: 065
     Dates: start: 20150915
  3. GLIPIZIDE. [Concomitant]
     Active Substance: GLIPIZIDE
     Route: 065

REACTIONS (5)
  - Blood count abnormal [Unknown]
  - Pneumonia [Unknown]
  - Diabetic ketoacidosis [Unknown]
  - Weight decreased [Not Recovered/Not Resolved]
  - Small intestinal obstruction [Unknown]

NARRATIVE: CASE EVENT DATE: 20150909
